FAERS Safety Report 21683106 (Version 1)
Quarter: 2022Q4

REPORT INFORMATION
  Report Type: Spontaneous
  Country: US (occurrence: None)
  Receive Date: 20221205
  Receipt Date: 20221205
  Transmission Date: 20230112
  Serious: Yes (Hospitalization)
  Sender: FDA-Public Use
  Company Number: US-FARMAPROD-202209-1865

PATIENT
  Sex: Female
  Weight: 77.861 kg

DRUGS (3)
  1. OXERVATE [Suspect]
     Active Substance: CENEGERMIN-BKBJ
     Indication: Neurotrophic keratopathy
     Route: 047
     Dates: start: 20220721, end: 20221026
  2. OXERVATE [Suspect]
     Active Substance: CENEGERMIN-BKBJ
     Route: 047
     Dates: start: 20221101, end: 20221026
  3. REGENER-EYES [Concomitant]

REACTIONS (4)
  - Hospitalisation [Unknown]
  - Ocular discomfort [Unknown]
  - Eye pain [Unknown]
  - Product dose omission issue [Unknown]
